FAERS Safety Report 7633934-5 (Version None)
Quarter: 2011Q3

REPORT INFORMATION
  Report Type: 
  Country: None (occurrence: None)
  Receive Date: 20110725
  Receipt Date: 20110719
  Transmission Date: 20111222
  Serious: Yes (Hospitalization, Other)
  Sender: FDA-Public Use
  Company Number: US-ALEXION-A201100412

PATIENT
  Sex: Female
  Weight: 61 kg

DRUGS (4)
  1. SOLIRIS [Suspect]
     Dosage: 900 MG, Q2W
     Route: 042
     Dates: start: 20110526
  2. HORMONES NOS [Concomitant]
     Indication: HORMONE REPLACEMENT THERAPY
     Dosage: UNK
  3. SOLIRIS [Suspect]
     Indication: PAROXYSMAL NOCTURNAL HAEMOGLOBINURIA
     Dosage: 600 MG, UNK
     Route: 042
     Dates: start: 20110310
  4. ARANESP [Concomitant]
     Indication: HAEMOGLOBIN DECREASED
     Dosage: 300 UG, Q2W PRN FOR HGB {11.8
     Route: 058

REACTIONS (10)
  - CONDITION AGGRAVATED [None]
  - OROPHARYNGEAL PAIN [None]
  - DRUG INEFFECTIVE [None]
  - MYELODYSPLASTIC SYNDROME [None]
  - CATHETER PLACEMENT [None]
  - ORAL DISORDER [None]
  - FATIGUE [None]
  - HYPERTENSION [None]
  - FULL BLOOD COUNT DECREASED [None]
  - COUGH [None]
